FAERS Safety Report 10059821 (Version 1)
Quarter: 2014Q2

REPORT INFORMATION
  Report Type: Spontaneous
  Country: US (occurrence: US)
  Receive Date: 20140404
  Receipt Date: 20140404
  Transmission Date: 20141212
  Serious: No
  Sender: FDA-Public Use
  Company Number: US-GLAXOSMITHKLINE-A1042071A

PATIENT
  Age: 61 Year
  Sex: Female

DRUGS (5)
  1. ALLI [Suspect]
     Indication: WEIGHT CONTROL
     Dates: start: 20130917, end: 20130917
  2. SIMVASTATIN [Suspect]
     Route: 048
  3. SYNTHROID [Suspect]
     Route: 048
  4. VESICARE [Concomitant]
  5. PROZAC [Concomitant]

REACTIONS (5)
  - Abdominal distension [Recovered/Resolved]
  - Gastric disorder [Recovered/Resolved]
  - Discomfort [Recovered/Resolved]
  - Drug interaction [Recovered/Resolved]
  - Gastric disorder [Recovered/Resolved]
